FAERS Safety Report 8157807-7 (Version None)
Quarter: 2012Q1

REPORT INFORMATION
  Report Type: 
  Country: None (occurrence: None)
  Receive Date: 20120222
  Receipt Date: 20120215
  Transmission Date: 20120608
  Serious: Yes (Hospitalization)
  Sender: FDA-Public Use
  Company Number: US-B.I. PHARMACEUTICALS,INC./RIDGEFIELD-2011-BP-22384BP

PATIENT
  Age: 68 Year
  Sex: Male
  Weight: 94.8 kg

DRUGS (6)
  1. PRADAXA [Suspect]
     Indication: ATRIAL FLUTTER
  2. PRADAXA [Suspect]
     Indication: ATRIAL FIBRILLATION
     Dosage: 300 MG
     Route: 048
     Dates: start: 20110825, end: 20110911
  3. ASPIRIN [Suspect]
     Indication: CORONARY ARTERY DISEASE
     Dates: end: 20110909
  4. NAPROXEN (ALEVE) [Suspect]
     Indication: BACK PAIN
     Route: 048
     Dates: end: 20110912
  5. VENOFER [Concomitant]
  6. PROTONIX [Concomitant]

REACTIONS (3)
  - DIZZINESS [None]
  - PEPTIC ULCER HAEMORRHAGE [None]
  - HAEMATOCHEZIA [None]
